FAERS Safety Report 4927849-0 (Version None)
Quarter: 2006Q1

REPORT INFORMATION
  Report Type: 
  Country: None (occurrence: None)
  Receive Date: 20060222
  Receipt Date: 20060208
  Transmission Date: 20060701
  Serious: Yes (Other)
  Sender: FDA-Public Use
  Company Number: 2006-CZ-00628

PATIENT
  Age: 56 Year
  Sex: Female

DRUGS (2)
  1. VERAPAMIL [Suspect]
  2. ACETYLSALICYLIC ACID SRT [Concomitant]

REACTIONS (5)
  - CUTANEOUS LUPUS ERYTHEMATOSUS [None]
  - LICHENOID KERATOSIS [None]
  - MUCOUS MEMBRANE DISORDER [None]
  - OCULAR ICTERUS [None]
  - POST INFLAMMATORY PIGMENTATION CHANGE [None]
